FAERS Safety Report 25729742 (Version 1)
Quarter: 2025Q3

REPORT INFORMATION
  Report Type: Report from Study
  Country: EU (occurrence: EU)
  Receive Date: 20250827
  Receipt Date: 20250827
  Transmission Date: 20251021
  Serious: Yes (Hospitalization)
  Sender: ROCHE
  Company Number: EU-ROCHE-10000370840

PATIENT

DRUGS (4)
  1. MABTHERA [Interacting]
     Active Substance: RITUXIMAB
     Indication: Autoimmune dermatitis
     Route: 065
  2. CELLCEPT [Interacting]
     Active Substance: MYCOPHENOLATE MOFETIL
     Indication: Autoimmune dermatitis
     Route: 065
  3. CYCLOPHOSPHAMIDE [Interacting]
     Active Substance: CYCLOPHOSPHAMIDE
     Indication: Autoimmune dermatitis
     Route: 065
  4. AZATHIOPRINE [Interacting]
     Active Substance: AZATHIOPRINE
     Indication: Autoimmune dermatitis
     Route: 065

REACTIONS (4)
  - Off label use [Unknown]
  - COVID-19 [Unknown]
  - SARS-CoV-2 antibody test negative [Unknown]
  - Vaccine interaction [Unknown]
